FAERS Safety Report 9504169 (Version 1)
Quarter: 2013Q3

REPORT INFORMATION
  Report Type: Spontaneous
  Country: US (occurrence: US)
  Receive Date: 20130906
  Receipt Date: 20130906
  Transmission Date: 20140515
  Serious: Yes (Other)
  Sender: FDA-Public Use
  Company Number: US-TARO-2013P1019038

PATIENT
  Sex: Female

DRUGS (1)
  1. LUSTRA [Suspect]
     Route: 061
     Dates: start: 1993

REACTIONS (3)
  - Oropharyngeal pain [Unknown]
  - Throat cancer [Unknown]
  - Accidental exposure to product [Unknown]
